FAERS Safety Report 19979623 (Version 2)
Quarter: 2022Q2

REPORT INFORMATION
  Report Type: Spontaneous
  Country: CA (occurrence: CA)
  Receive Date: 20211020
  Receipt Date: 20220616
  Transmission Date: 20220721
  Serious: Yes (Hospitalization, Other)
  Sender: FDA-Public Use
  Company Number: CA-ABBVIE-21K-028-4119408-00

PATIENT
  Age: 51 Year
  Sex: Male

DRUGS (12)
  1. DIVALPROEX SODIUM [Suspect]
     Active Substance: DIVALPROEX SODIUM
     Indication: Product used for unknown indication
     Route: 065
  2. CLOZAPINE [Suspect]
     Active Substance: CLOZAPINE
     Indication: Schizoaffective disorder
     Route: 065
  3. CLOZAPINE [Suspect]
     Active Substance: CLOZAPINE
     Route: 048
  4. CLOZAPINE [Suspect]
     Active Substance: CLOZAPINE
     Route: 065
  5. CLOZAPINE [Suspect]
     Active Substance: CLOZAPINE
     Route: 065
  6. FENOFIBRATE [Suspect]
     Active Substance: FENOFIBRATE
     Indication: Product used for unknown indication
     Route: 065
  7. METFORMIN HYDROCHLORIDE [Suspect]
     Active Substance: METFORMIN HYDROCHLORIDE
     Indication: Product used for unknown indication
     Route: 065
  8. PANTOPRAZOLE [Suspect]
     Active Substance: PANTOPRAZOLE
     Indication: Product used for unknown indication
     Route: 065
  9. LINAGLIPTIN [Suspect]
     Active Substance: LINAGLIPTIN
     Indication: Product used for unknown indication
     Route: 065
  10. LINAGLIPTIN [Suspect]
     Active Substance: LINAGLIPTIN
     Route: 065
  11. PFIZER-BIONTECH COVID-19 VACCINE [Suspect]
     Active Substance: TOZINAMERAN
     Indication: Immunisation
     Route: 065
  12. PFIZER-BIONTECH COVID-19 VACCINE [Suspect]
     Active Substance: TOZINAMERAN
     Indication: Immunisation

REACTIONS (11)
  - Pneumonia [Recovered/Resolved]
  - Delirium [Recovered/Resolved]
  - Fall [Unknown]
  - C-reactive protein increased [Recovered/Resolved]
  - Monocyte count increased [Recovered/Resolved]
  - Neutrophil count increased [Recovered/Resolved]
  - Toxicity to various agents [Recovered/Resolved]
  - Incontinence [Recovered/Resolved]
  - Lymphocyte count decreased [Recovered/Resolved]
  - Antipsychotic drug level increased [Recovered/Resolved]
  - Toxicity to various agents [Recovered/Resolved]
